FAERS Safety Report 6892311-5 (Version None)
Quarter: 2010Q3

REPORT INFORMATION
  Report Type: 
  Country: None (occurrence: None)
  Receive Date: 20100731
  Receipt Date: 20080318
  Transmission Date: 20110219
  Serious: No
  Sender: FDA-Public Use
  Company Number: US-PFIZER INC-2008024858

PATIENT
  Sex: Female
  Weight: 65.9 kg

DRUGS (2)
  1. NORVASC [Suspect]
     Indication: HYPERTENSION
  2. DRUG, UNSPECIFIED [Concomitant]

REACTIONS (2)
  - HAEMORRHOIDAL HAEMORRHAGE [None]
  - HAEMORRHOIDS [None]
